FAERS Safety Report 8287314-2 (Version None)
Quarter: 2012Q2

REPORT INFORMATION
  Report Type: 
  Country: None (occurrence: None)
  Receive Date: 20120416
  Receipt Date: 20120416
  Transmission Date: 20120825
  Serious: Yes (Other)
  Sender: FDA-Public Use
  Company Number: None

PATIENT
  Age: 61 Year
  Sex: Male
  Weight: 102.05 kg

DRUGS (4)
  1. LIPITOR [Suspect]
     Indication: MYALGIA
     Dosage: ONE TAB -10G-
     Route: 048
     Dates: start: 20111230, end: 20120310
  2. LIPITOR [Suspect]
     Indication: FATIGUE
     Dosage: ONE TAB -10G-
     Route: 048
     Dates: start: 20111230, end: 20120310
  3. LIPITOR [Suspect]
     Indication: TENDERNESS
     Dosage: ONE TAB -10G-
     Route: 048
     Dates: start: 20111230, end: 20120310
  4. LIPITOR [Suspect]
     Indication: INSOMNIA
     Dosage: ONE TAB -10G-
     Route: 048
     Dates: start: 20111230, end: 20120310

REACTIONS (5)
  - FATIGUE [None]
  - MYALGIA [None]
  - TENDERNESS [None]
  - DRUG INEFFECTIVE [None]
  - INSOMNIA [None]
